FAERS Safety Report 21674902 (Version 4)
Quarter: 2023Q1

REPORT INFORMATION
  Report Type: Report from Study
  Country: US (occurrence: US)
  Receive Date: 20221202
  Receipt Date: 20230315
  Transmission Date: 20230418
  Serious: Yes (Hospitalization, Other)
  Sender: FDA-Public Use
  Company Number: US-UCBSA-2022068296

PATIENT
  Age: 21 Year
  Sex: Female

DRUGS (3)
  1. FINTEPLA [Suspect]
     Active Substance: FENFLURAMINE
     Indication: Product used for unknown indication
     Dosage: 6 MILLILITER, 2X/DAY (BID)
  2. FINTEPLA [Suspect]
     Active Substance: FENFLURAMINE
     Dosage: 2 MILLILITER, 2X/DAY (BID)
  3. FINTEPLA [Suspect]
     Active Substance: FENFLURAMINE
     Dosage: 6 MILLILITER, 2X/DAY (BID)
     Dates: end: 20230306

REACTIONS (9)
  - Seizure [Not Recovered/Not Resolved]
  - Heart rate increased [Recovered/Resolved]
  - Pyrexia [Not Recovered/Not Resolved]
  - Oxygen saturation decreased [Recovered/Resolved]
  - Lethargy [Not Recovered/Not Resolved]
  - Respiratory disorder [Not Recovered/Not Resolved]
  - Anxiety [Not Recovered/Not Resolved]
  - Restlessness [Not Recovered/Not Resolved]
  - Intentional dose omission [Unknown]

NARRATIVE: CASE EVENT DATE: 20221125
